FAERS Safety Report 8269047-1 (Version None)
Quarter: 2012Q1

REPORT INFORMATION
  Report Type: 
  Country: None (occurrence: None)
  Receive Date: 20120327
  Receipt Date: 20091019
  Transmission Date: 20120608
  Serious: Yes (Other)
  Sender: FDA-Public Use
  Company Number: PHEH2009US13012

PATIENT
  Age: 53 Year
  Sex: Female

DRUGS (4)
  1. GLEEVEC [Suspect]
     Indication: GLIOBLASTOMA MULTIFORME
     Dosage: 400 MG, DAILY, ORAL
     Route: 048
  2. HYDREA [Suspect]
     Indication: GLIOBLASTOMA MULTIFORME
     Dosage: 500 QD, ORAL
     Route: 048
  3. KEPPRA [Suspect]
     Indication: GLIOBLASTOMA MULTIFORME
  4. AVASTIN [Suspect]
     Indication: GLIOBLASTOMA MULTIFORME
     Dosage: 10 MG/KG, INTRAVENOUS
     Route: 042

REACTIONS (6)
  - NEOPLASM MALIGNANT [None]
  - DIZZINESS [None]
  - NEOPLASM PROGRESSION [None]
  - NAUSEA [None]
  - NECK PAIN [None]
  - FATIGUE [None]
